FAERS Safety Report 5843078-0 (Version None)
Quarter: 2008Q3

REPORT INFORMATION
  Report Type: 
  Country: None (occurrence: None)
  Receive Date: 20080812
  Receipt Date: 20080812
  Transmission Date: 20090109
  Serious: Yes (Death)
  Sender: FDA-Public Use
  Company Number: None

PATIENT
  Age: 64 Year
  Sex: Female
  Weight: 36.2878 kg

DRUGS (1)
  1. RELISTOR [Suspect]
     Indication: CONSTIPATION
     Dosage: 12MG  X 1 SQ
     Route: 058
     Dates: start: 20080807, end: 20080807

REACTIONS (3)
  - ABDOMINAL RIGIDITY [None]
  - ACIDOSIS [None]
  - INTESTINAL PERFORATION [None]
